FAERS Safety Report 8508976-8 (Version None)
Quarter: 2012Q3

REPORT INFORMATION
  Report Type: 
  Country: None (occurrence: None)
  Receive Date: 20120713
  Receipt Date: 20120710
  Transmission Date: 20120928
  Serious: Yes (Life-Threatening, Hospitalization, Disabling, Other)
  Sender: FDA-Public Use
  Company Number: JP-B.I. PHARMACEUTICALS,INC./RIDGEFIELD-2012-BP-14254NB

PATIENT
  Age: 70 Year
  Sex: Male
  Weight: 70.3 kg

DRUGS (16)
  1. SOLDACTONE [Concomitant]
     Dosage: 100 MG
     Route: 042
  2. AMIODARONE HYDROCHLORIDE [Concomitant]
     Dosage: 200 MG
     Route: 048
  3. FENTANYL [Concomitant]
     Route: 042
  4. LASIX [Concomitant]
     Dosage: 240 MG
     Route: 042
  5. PRADAXA [Suspect]
     Dosage: 220 MG
     Route: 065
     Dates: start: 20120601, end: 20120622
  6. LIPITOR [Concomitant]
     Dosage: 10 MG
     Route: 048
  7. DOBUPUM [Concomitant]
     Route: 042
  8. DIPRIVAN [Concomitant]
     Route: 042
  9. HANP [Concomitant]
     Route: 042
  10. PRADAXA [Suspect]
     Indication: ATRIAL FIBRILLATION
     Dosage: 300 MG
     Route: 048
     Dates: start: 20111101, end: 20120601
  11. ASPIRIN [Suspect]
     Indication: MYOCARDIAL INFARCTION
     Dosage: 100 MG
     Route: 065
     Dates: end: 20120622
  12. MILRINONE LACTATE [Concomitant]
     Route: 042
  13. PLAVIX [Suspect]
     Indication: MYOCARDIAL INFARCTION
     Dosage: 75 MG
     Route: 065
     Dates: end: 20120622
  14. HEPARIN [Suspect]
     Route: 065
     Dates: end: 20120622
  15. LANSOPRAZOLE [Concomitant]
     Dosage: 30 MG
     Route: 048
  16. CEFOTIAM HYDROCHLORIDE [Concomitant]
     Dosage: 2 G
     Route: 042

REACTIONS (8)
  - HAEMORRHAGIC CEREBRAL INFARCTION [None]
  - CARDIAC FAILURE ACUTE [None]
  - HEPATIC FUNCTION ABNORMAL [None]
  - DEPRESSED LEVEL OF CONSCIOUSNESS [None]
  - CARDIOGENIC SHOCK [None]
  - CEREBRAL INFARCTION [None]
  - ACUTE MYOCARDIAL INFARCTION [None]
  - HAEMATOCHEZIA [None]
